FAERS Safety Report 5262438-2 (Version None)
Quarter: 2007Q1

REPORT INFORMATION
  Report Type: 
  Country: None (occurrence: None)
  Receive Date: 20070312
  Receipt Date: 20070304
  Transmission Date: 20070707
  Serious: Yes (Other)
  Sender: FDA-Public Use
  Company Number: FI-AVENTIS-200712006GDDC

PATIENT
  Age: 2 Year
  Sex: Female

DRUGS (7)
  1. LANTUS [Suspect]
     Route: 058
     Dates: start: 20060302, end: 20060401
  2. LANTUS [Suspect]
     Route: 058
     Dates: start: 20060401, end: 20060501
  3. LANTUS [Suspect]
     Route: 058
     Dates: start: 20060501, end: 20061211
  4. NOVORAPID [Concomitant]
     Route: 058
     Dates: start: 20060302
  5. DIFLUCAN [Concomitant]
     Dates: start: 20060426
  6. DIFLUCAN [Concomitant]
     Dosage: DOSE: SECOND COURSE - SUMMER
     Dates: start: 20060101, end: 20060101
  7. DIFLUCAN [Concomitant]
     Dosage: DOSE: THIRD COURSE ~ AUTUMN
     Dates: start: 20060101, end: 20060101

REACTIONS (3)
  - DIZZINESS [None]
  - OFF LABEL USE [None]
  - STATUS EPILEPTICUS [None]
